FAERS Safety Report 7960401-1 (Version None)
Quarter: 2011Q4

REPORT INFORMATION
  Report Type: 
  Country: None (occurrence: None)
  Receive Date: 20111206
  Receipt Date: 20111129
  Transmission Date: 20120403
  Serious: Yes (Hospitalization, Other)
  Sender: FDA-Public Use
  Company Number: TR-ABBOTT-11P-161-0864702-00

PATIENT
  Age: 9 Year
  Sex: Female
  Weight: 50 kg

DRUGS (1)
  1. DEPAKENE [Suspect]
     Indication: TONIC CONVULSION
     Dosage: INGESTED TOTAL: 196MG/KG

REACTIONS (4)
  - SUICIDE ATTEMPT [None]
  - OVERDOSE [None]
  - TOXICITY TO VARIOUS AGENTS [None]
  - HYPERAMMONAEMIA [None]
